FAERS Safety Report 4829179-4 (Version None)
Quarter: 2005Q4

REPORT INFORMATION
  Report Type: 
  Country: None (occurrence: None)
  Receive Date: 20051028
  Receipt Date: 20050725
  Transmission Date: 20060501
  Serious: No
  Sender: FDA-Public Use
  Company Number: COT_0149_2005

PATIENT
  Age: 54 Year
  Sex: Female
  Weight: 131.5431 kg

DRUGS (10)
  1. VENTAVIS [Suspect]
     Indication: PULMONARY HYPERTENSION
     Dosage: 5 MCG VARIABLE IH
     Route: 055
  2. COUMADIN [Concomitant]
  3. TRACLEER [Concomitant]
  4. SILDENAFIL [Concomitant]
  5. THYROID TAB [Concomitant]
  6. PAXIL [Concomitant]
  7. LASIX [Concomitant]
  8. CELEBREX [Concomitant]
  9. POTASSIUM [Concomitant]
  10. TRIAMTERENE [Concomitant]

REACTIONS (1)
  - OCULAR HYPERAEMIA [None]
